FAERS Safety Report 14474851 (Version 1)
Quarter: 2018Q1

REPORT INFORMATION
  Report Type: Spontaneous
  Country: IT (occurrence: IT)
  Receive Date: 20180201
  Receipt Date: 20180201
  Transmission Date: 20180509
  Serious: Yes (Hospitalization, Other)
  Sender: FDA-Public Use
  Company Number: IT-MISSION PHARMACAL COMPANY-2041213

PATIENT
  Age: 77 Year
  Sex: Female

DRUGS (8)
  1. PREDNISONE. [Concomitant]
     Active Substance: PREDNISONE
     Route: 065
  2. HEPARIN [Concomitant]
     Active Substance: HEPARIN SODIUM
     Route: 065
  3. CHOLECALCIFEROL [Concomitant]
     Active Substance: CHOLECALCIFEROL
     Route: 065
  4. HYDROXYCHLOROQUINE SULFATE. [Concomitant]
     Active Substance: HYDROXYCHLOROQUINE SULFATE
     Route: 065
  5. BINOSTO [Suspect]
     Active Substance: ALENDRONATE SODIUM
     Indication: OSTEOPOROSIS
     Route: 065
  6. FORTEO [Concomitant]
     Active Substance: TERIPARATIDE
     Route: 065
  7. CALCIUM SUPPLEMENT [Concomitant]
     Active Substance: CALCIUM
     Route: 065
  8. METHYLPREDNISOLONE. [Concomitant]
     Active Substance: METHYLPREDNISOLONE
     Route: 065

REACTIONS (5)
  - Atypical femur fracture [Recovering/Resolving]
  - Spinal fracture [Unknown]
  - Periprosthetic fracture [Recovering/Resolving]
  - Pain [Recovering/Resolving]
  - Back pain [Recovered/Resolved]

NARRATIVE: CASE EVENT DATE: 2014
